FAERS Safety Report 8972755 (Version 1)
Quarter: 2012Q4

REPORT INFORMATION
  Report Type: Spontaneous
  Country: GB (occurrence: None)
  Receive Date: 20121207
  Receipt Date: 20121207
  Transmission Date: 20130627
  Serious: Yes (Hospitalization)
  Sender: FDA-Public Use
  Company Number: AUR-APL-2012-05142

PATIENT
  Age: 54 Year

DRUGS (13)
  1. CIPROFLOXACIN (CIPROFLOXACIN) [Suspect]
     Route: 048
     Dates: start: 20121027, end: 20121028
  2. TRIMETHOPRIM [Suspect]
     Dosage: 400 mg (200 mg, 2 in 1 D), Oral
10/29/2012 - 10/30/2012
     Route: 048
     Dates: start: 20121029, end: 20121030
  3. LEVETIRACETAM [Suspect]
     Dosage: 2 gm (1 gm, 2 in 1 D), Oral
 - Ongoing
     Route: 048
  4. NITROFURANTOIN [Suspect]
     Dosage: 400 mg (100 mg, 4 in 1 D), Oral
10/28/2012 - 10/29/2012
     Route: 048
     Dates: start: 20121028, end: 20121029
  5. CHLORPHENAMINE [Concomitant]
  6. CHOLESTYRAMINE (COLESTYRAMINE) [Concomitant]
  7. CYCLIZINE (CYCLIZINE) [Concomitant]
  8. DOMPERIDONE (DOMPERIDONE) [Concomitant]
  9. LOPERAMIDE (LOPERAMIDE) [Concomitant]
  10. METOCLOPRAMIDE (METOCLOPRAMIDE) [Suspect]
  11. OMEPRAZOLE (OMEPRAZOLE) [Concomitant]
  12. PARACETAMOL (PARACETAMOL) [Concomitant]
  13. TOPIRAMATE (TOPIRAMATE) [Concomitant]

REACTIONS (2)
  - Drug reaction with eosinophilia and systemic symptoms [None]
  - Intestinal perforation [None]
